FAERS Safety Report 13043493 (Version 9)
Quarter: 2021Q3

REPORT INFORMATION
  Report Type: Report from Study
  Country: CN (occurrence: CN)
  Receive Date: 20161220
  Receipt Date: 20210701
  Transmission Date: 20211014
  Serious: Yes (Hospitalization)
  Sender: FDA-Public Use
  Company Number: CN-ROCHE-1867476

PATIENT
  Age: 46 Year
  Sex: Male
  Weight: 63.5 kg

DRUGS (13)
  1. MEDIUM AND LONG CHAIN FAT EMULSION INJECTION [Concomitant]
     Active Substance: LIPOSYN (R) INTRAVENOUS FAT EMULSION
     Indication: NUTRITIONAL SUPPLEMENTATION
     Dates: start: 20161212, end: 20161216
  2. ESTAZOLAM. [Concomitant]
     Active Substance: ESTAZOLAM
     Dates: start: 20161212, end: 20161217
  3. INVERT SUGAR AND ELECTROLYTES [Concomitant]
     Dates: start: 20161212, end: 20161216
  4. ZHEN QI FU ZHENG KE LI [Concomitant]
     Dates: start: 201609, end: 20161104
  5. CEFOXITIN SODIUM [Concomitant]
     Active Substance: CEFOXITIN SODIUM
     Dates: start: 20161213, end: 20161216
  6. NYSTATIN. [Concomitant]
     Active Substance: NYSTATIN
     Dates: start: 20161213, end: 20161216
  7. DIAMMONIUM GLYCYRRHIZINATE [Concomitant]
     Active Substance: HERBALS\DIAMMONIUM GLYCYRRHIZINATE
     Indication: RASH MACULO-PAPULAR
     Dates: start: 20161109, end: 20161110
  8. ATEZOLIZUMAB. [Suspect]
     Active Substance: ATEZOLIZUMAB
     Indication: NON-SMALL CELL LUNG CANCER
     Dosage: FIXED DOSE PER PROTOCOL. MOST RECENT DOSE OF ATEZOLIZUMAB 1200 MG PRIOR TO THE EVENT ONSET WAS ON 02
     Route: 042
     Dates: start: 20161111
  9. VITAMIN B6 [Concomitant]
     Active Substance: PYRIDOXINE HYDROCHLORIDE
     Dates: start: 20161212, end: 20161212
  10. METHYLPREDNISOLONE. [Concomitant]
     Active Substance: METHYLPREDNISOLONE
     Indication: DRUG ERUPTION
     Dates: start: 20161213, end: 20161216
  11. BICYCLOL [Concomitant]
     Active Substance: BICYCLOL
     Dates: start: 20161109, end: 20161110
  12. LANSOPRAZOLE. [Concomitant]
     Active Substance: LANSOPRAZOLE
     Dates: start: 20161212, end: 20161216
  13. GLYCYRRHIZIC ACID [Concomitant]
     Active Substance: GLYCYRRHIZIN
     Dosage: GLYCYRRHIZIC ACID AMINE ENTERIC
     Dates: start: 20161109, end: 20161110

REACTIONS (1)
  - Erythema [Recovered/Resolved]

NARRATIVE: CASE EVENT DATE: 20161128
